FAERS Safety Report 25435585 (Version 1)
Quarter: 2025Q2

REPORT INFORMATION
  Report Type: Spontaneous
  Country: FR (occurrence: FR)
  Receive Date: 20250613
  Receipt Date: 20250613
  Transmission Date: 20250717
  Serious: Yes (Hospitalization)
  Sender: MYLAN
  Company Number: None

PATIENT
  Age: 89 Year
  Sex: Female

DRUGS (3)
  1. LYRICA [Interacting]
     Active Substance: PREGABALIN
     Indication: Product used for unknown indication
  2. BACLOFEN [Interacting]
     Active Substance: BACLOFEN
     Indication: Product used for unknown indication
     Dates: start: 20250403, end: 20250403
  3. MESTINON [Suspect]
     Active Substance: PYRIDOSTIGMINE BROMIDE
     Indication: Product used for unknown indication
     Dates: start: 20250403, end: 20250403

REACTIONS (3)
  - Confusional state [Recovered/Resolved]
  - Potentiating drug interaction [Recovered/Resolved]
  - Wrong patient [Recovered/Resolved]

NARRATIVE: CASE EVENT DATE: 20250403
